FAERS Safety Report 14315555 (Version 1)
Quarter: 2017Q4

REPORT INFORMATION
  Report Type: Other
  Country: US (occurrence: US)
  Receive Date: 20171221
  Receipt Date: 20171221
  Transmission Date: 20180321
  Serious: No
  Sender: FDA-Public Use
  Company Number: US-IMPAX LABORATORIES, INC-2017-IPXL-02810

PATIENT
  Age: 94 Year
  Sex: Female

DRUGS (1)
  1. COLESTIPOL HYDROCHLORIDE. [Suspect]
     Active Substance: COLESTIPOL HYDROCHLORIDE
     Indication: PRODUCT USED FOR UNKNOWN INDICATION
     Dosage: 2 G, UNK
     Route: 048
     Dates: end: 201709

REACTIONS (3)
  - Product physical issue [Unknown]
  - Product use complaint [Recovered/Resolved]
  - Product shape issue [Unknown]

NARRATIVE: CASE EVENT DATE: 201709
